FAERS Safety Report 25224052 (Version 1)
Quarter: 2025Q2

REPORT INFORMATION
  Report Type: Spontaneous
  Country: IT (occurrence: IT)
  Receive Date: 20250422
  Receipt Date: 20250422
  Transmission Date: 20250717
  Serious: Yes (Other)
  Sender: AUROBINDO
  Company Number: IT-002147023-NVSC2025IT053604

PATIENT
  Age: 44 Year
  Sex: Female

DRUGS (6)
  1. LETROZOLE [Suspect]
     Active Substance: LETROZOLE
     Indication: Breast cancer
     Dosage: 2.5 MILLIGRAM, ONCE A DAY
     Route: 065
     Dates: start: 202403
  2. RIBOCICLIB [Suspect]
     Active Substance: RIBOCICLIB
     Indication: Breast cancer
     Dosage: 600 MILLIGRAM, ONCE A DAY(600 MG, QD (1- 21 EACH 28 DAYS))
     Route: 065
     Dates: start: 202403
  3. RIBOCICLIB [Suspect]
     Active Substance: RIBOCICLIB
     Route: 065
  4. TAPAZOLE [Concomitant]
     Active Substance: METHIMAZOLE
     Indication: Thyroid disorder
     Dosage: 2 DOSAGE FORM, QD
     Route: 065
     Dates: start: 202405
  5. BISOPROLOL [Concomitant]
     Active Substance: BISOPROLOL
     Indication: Thyroid disorder
     Dosage: 1.25 MG, QD
     Route: 065
     Dates: start: 202405
  6. DENOSUMAB [Concomitant]
     Active Substance: DENOSUMAB
     Indication: Product used for unknown indication
     Route: 065

REACTIONS (5)
  - Hyperthyroidism [Unknown]
  - Neutropenia [Unknown]
  - Heart rate increased [Unknown]
  - Sinus tachycardia [Unknown]
  - Therapeutic response decreased [Unknown]

NARRATIVE: CASE EVENT DATE: 20240501
